FAERS Safety Report 14481727 (Version 2)
Quarter: 2018Q2

REPORT INFORMATION
  Report Type: Report from Study
  Country: CA (occurrence: CA)
  Receive Date: 20180202
  Receipt Date: 20180619
  Transmission Date: 20180711
  Serious: Yes (Hospitalization, Other)
  Sender: FDA-Public Use
  Company Number: PHHY2018CA013778

PATIENT
  Sex: Male

DRUGS (4)
  1. CYCLOSPORINE. [Interacting]
     Active Substance: CYCLOSPORINE
     Indication: PRODUCT USED FOR UNKNOWN INDICATION
     Route: 065
  2. JADENU [Suspect]
     Active Substance: DEFERASIROX
     Indication: MYELODYSPLASTIC SYNDROME
     Dosage: 1080 MG, UNK
     Route: 048
     Dates: start: 20171018, end: 20180109
  3. JADENU [Interacting]
     Active Substance: DEFERASIROX
     Dosage: 1080 MG, UNK
     Route: 048
     Dates: start: 20180123
  4. JADENU [Interacting]
     Active Substance: DEFERASIROX
     Dosage: 1080 MG, QD
     Route: 048
     Dates: start: 20180604

REACTIONS (5)
  - Drug interaction [Unknown]
  - Immune system disorder [Unknown]
  - Blood creatinine increased [Unknown]
  - Type 1 diabetes mellitus [Unknown]
  - Red blood cell abnormality [Unknown]
